FAERS Safety Report 7399658-7 (Version None)
Quarter: 2011Q2

REPORT INFORMATION
  Report Type: 
  Country: None (occurrence: None)
  Receive Date: 20110407
  Receipt Date: 20100412
  Transmission Date: 20111010
  Serious: No
  Sender: FDA-Public Use
  Company Number: US-KINGPHARMUSA00001-K201000429

PATIENT
  Sex: Male
  Weight: 88.435 kg

DRUGS (5)
  1. SKELAXIN [Suspect]
     Indication: BACK PAIN
     Dosage: 800 MG, QID
     Route: 048
     Dates: start: 20100125, end: 20100101
  2. SKELAXIN [Suspect]
     Dosage: 800 MG, TID
     Route: 048
     Dates: start: 20100101, end: 20100219
  3. CYMBALTA [Suspect]
     Indication: BACK PAIN
     Dosage: 30 MG, SINGLE
     Route: 048
     Dates: start: 20100101, end: 20100101
  4. NAPROXEN [Suspect]
     Indication: BACK PAIN
     Dosage: UNK
     Route: 048
     Dates: start: 20100101, end: 20100101
  5. MOBIC [Suspect]
     Indication: BACK PAIN
     Dosage: 7.5 MG, BID
     Route: 048
     Dates: start: 20100125, end: 20100219

REACTIONS (7)
  - FEELING ABNORMAL [None]
  - FEELING HOT [None]
  - OEDEMA PERIPHERAL [None]
  - MUSCULAR WEAKNESS [None]
  - GAIT DISTURBANCE [None]
  - MUSCULOSKELETAL DISCOMFORT [None]
  - ADVERSE REACTION [None]
